FAERS Safety Report 19537600 (Version 1)
Quarter: 2021Q3

REPORT INFORMATION
  Report Type: Spontaneous
  Country: US (occurrence: US)
  Receive Date: 20210714
  Receipt Date: 20210714
  Transmission Date: 20211014
  Serious: Yes (Death)
  Sender: FDA-Public Use
  Company Number: None

PATIENT
  Age: 65 Year
  Sex: Male

DRUGS (6)
  1. TENOFOVIR [Suspect]
     Active Substance: TENOFOVIR
  2. TAMSULOSIN [Suspect]
     Active Substance: TAMSULOSIN
  3. CAPECITABINE 500 MG [Suspect]
     Active Substance: CAPECITABINE
     Indication: COLORECTAL CANCER
     Dosage: ?          OTHER FREQUENCY:BID X 14DAY;?
     Route: 048
     Dates: start: 20210411, end: 20210630
  4. ACETAMINOPHEN. [Suspect]
     Active Substance: ACETAMINOPHEN
  5. AMLODIPINE [Suspect]
     Active Substance: AMLODIPINE BESYLATE
  6. MULTIVITAMIN [Suspect]
     Active Substance: VITAMINS

REACTIONS (1)
  - Death [None]
